FAERS Safety Report 18544082 (Version 7)
Quarter: 2021Q3

REPORT INFORMATION
  Report Type: Report from Study
  Country: US (occurrence: US)
  Receive Date: 20201125
  Receipt Date: 20210917
  Transmission Date: 20211014
  Serious: No
  Sender: FDA-Public Use
  Company Number: NVSC2020US307720

PATIENT
  Age: 51 Year
  Sex: Female

DRUGS (4)
  1. COSENTYX [Suspect]
     Active Substance: SECUKINUMAB
     Indication: PSORIASIS
     Dosage: 300 MG, QW (Q WEEKLY X 5 WEEKS THEN Q 4 WEEKS)
     Route: 058
  2. COSENTYX [Suspect]
     Active Substance: SECUKINUMAB
     Indication: PSORIATIC ARTHROPATHY
     Dosage: 300 MG, Q4W (EVERY 4 WEEKS)
     Route: 058
     Dates: start: 20210312
  3. COSENTYX [Suspect]
     Active Substance: SECUKINUMAB
     Dosage: 300 MG, Q4W (EVERY 4 WEEKS)
     Route: 058
  4. COSENTYX [Suspect]
     Active Substance: SECUKINUMAB
     Dosage: 300 MG, QMO
     Route: 058
     Dates: start: 202011

REACTIONS (8)
  - Pruritus [Unknown]
  - Product dose omission issue [Recovering/Resolving]
  - Ill-defined disorder [Recovering/Resolving]
  - Feeling abnormal [Recovering/Resolving]
  - Psoriasis [Unknown]
  - Inappropriate schedule of product administration [Unknown]
  - COVID-19 [Not Recovered/Not Resolved]
  - Pain in extremity [Unknown]

NARRATIVE: CASE EVENT DATE: 202012
